FAERS Safety Report 25246675 (Version 2)
Quarter: 2025Q2

REPORT INFORMATION
  Report Type: Report from Study
  Country: US (occurrence: US)
  Receive Date: 20250428
  Receipt Date: 20250502
  Transmission Date: 20250716
  Serious: Yes (Death, Hospitalization, Other)
  Sender: NOVARTIS
  Company Number: US-002147023-NVSC2025US068328

PATIENT
  Sex: Male

DRUGS (16)
  1. PLUVICTO [Suspect]
     Active Substance: LUTETIUM LU-177 VIPIVOTIDE TETRAXETAN
     Indication: Product used for unknown indication
     Route: 042
     Dates: start: 20250310
  2. AMOXICILLIN [Concomitant]
     Active Substance: AMOXICILLIN
     Indication: Product used for unknown indication
     Dosage: 1 DOSAGE FORM, TID
     Route: 048
  3. HYOSCYAMINE [Concomitant]
     Active Substance: HYOSCYAMINE
     Indication: Salivary hypersecretion
     Route: 060
  4. HYOSCYAMINE [Concomitant]
     Active Substance: HYOSCYAMINE
     Indication: Abdominal pain
  5. HYOSCYAMINE [Concomitant]
     Active Substance: HYOSCYAMINE
     Indication: Muscle spasms
  6. LORAZEPAM [Concomitant]
     Active Substance: LORAZEPAM
     Indication: Dyspnoea
     Route: 060
  7. LORAZEPAM [Concomitant]
     Active Substance: LORAZEPAM
     Indication: Restlessness
  8. LORAZEPAM [Concomitant]
     Active Substance: LORAZEPAM
     Indication: Nausea
  9. LORAZEPAM [Concomitant]
     Active Substance: LORAZEPAM
     Indication: Vomiting
  10. MORPHINE [Concomitant]
     Active Substance: MORPHINE
     Indication: Pain
     Route: 060
     Dates: end: 20250406
  11. MORPHINE [Concomitant]
     Active Substance: MORPHINE
     Indication: Dyspnoea
  12. ASPIRIN [Concomitant]
     Active Substance: ASPIRIN
     Indication: Product used for unknown indication
     Dosage: 1 DOSAGE FORM, QD
     Route: 048
  13. VITAMINS [Concomitant]
     Active Substance: VITAMINS
     Indication: Product used for unknown indication
     Route: 065
  14. ZOFRAN [Concomitant]
     Active Substance: ONDANSETRON HYDROCHLORIDE
     Indication: Nausea
     Route: 048
  15. ZOFRAN [Concomitant]
     Active Substance: ONDANSETRON HYDROCHLORIDE
     Indication: Vomiting
  16. ACETAMINOPHEN\HYDROCODONE [Concomitant]
     Active Substance: ACETAMINOPHEN\HYDROCODONE
     Indication: Pain
     Route: 048

REACTIONS (23)
  - Death [Fatal]
  - Actinomyces bacteraemia [Unknown]
  - Acute respiratory failure [Unknown]
  - Anaemia [Unknown]
  - Failure to thrive [Unknown]
  - Pleural effusion [Unknown]
  - Malnutrition [Unknown]
  - Thrombocytopenia [Unknown]
  - Asthenia [Unknown]
  - Cachexia [Unknown]
  - Fatigue [Unknown]
  - Cancer pain [Unknown]
  - Acute pulmonary oedema [Unknown]
  - Pain [Unknown]
  - Illness [Unknown]
  - Hypophagia [Unknown]
  - Performance status decreased [Unknown]
  - Haemorrhage [Unknown]
  - Pneumothorax [Unknown]
  - Systemic inflammatory response syndrome [Unknown]
  - Sepsis [Unknown]
  - Tachycardia [Unknown]
  - Hyponatraemia [Unknown]
